FAERS Safety Report 7805287-0 (Version None)
Quarter: 2011Q4

REPORT INFORMATION
  Report Type: 
  Country: None (occurrence: None)
  Receive Date: 20111010
  Receipt Date: 20111006
  Transmission Date: 20120403
  Serious: No
  Sender: FDA-Public Use
  Company Number: US-PFIZER INC-2011239454

PATIENT
  Sex: Female
  Weight: 53.515 kg

DRUGS (7)
  1. WELLBUTRIN [Concomitant]
     Indication: ANXIETY
     Dosage: 50 MG, DAILY
  2. XANAX [Concomitant]
     Indication: ANXIETY
     Dosage: 1 MG, DAILY
  3. WELLBUTRIN [Concomitant]
     Indication: PANIC ATTACK
  4. IBUPROFEN (ADVIL) [Suspect]
     Indication: PAIN
     Dosage: 4 TABLETS, 3X/DAY
     Route: 048
     Dates: start: 20110930, end: 20111005
  5. MULTI-VITAMINS [Concomitant]
     Dosage: UNK, DAILY
  6. PRILOSEC [Concomitant]
     Indication: DYSPEPSIA
     Dosage: DAILY
  7. FISH OIL [Concomitant]
     Dosage: 1000 MG, DAILY

REACTIONS (3)
  - PRURITUS [None]
  - ABDOMINAL PAIN UPPER [None]
  - BLISTER [None]
